FAERS Safety Report 9894422 (Version 1)
Quarter: 2014Q1

REPORT INFORMATION
  Report Type: Spontaneous
  Country: DE (occurrence: DE)
  Receive Date: 20140213
  Receipt Date: 20140213
  Transmission Date: 20141002
  Serious: Yes (Congenital Anomaly, Other)
  Sender: FDA-Public Use
  Company Number: GXKR2014DE000867

PATIENT
  Age: 1 Day
  Sex: Male
  Weight: 2.79 kg

DRUGS (5)
  1. CITALOPRAM [Suspect]
     Indication: PANIC ATTACK
     Dosage: 20 [MG/D ]
     Route: 064
     Dates: start: 20111226
  2. AMITRIPTYLINE HYDROCHLORIDE [Suspect]
     Indication: BORDERLINE PERSONALITY DISORDER
     Dosage: UNK UKN, UNK
     Route: 064
  3. LYRICA [Suspect]
     Indication: PSYCHOGENIC PAIN DISORDER
     Dosage: 150 [MG/D ]
     Route: 064
     Dates: start: 20111226, end: 20120927
  4. DOMINAL FORTE [Suspect]
     Indication: PANIC ATTACK
     Dosage: 160 [MG/D ]
     Route: 064
     Dates: start: 20111226, end: 20120927
  5. TAVOR (LORAZEPAM) [Suspect]
     Indication: PANIC ATTACK
     Dosage: 2 [MG/D ]
     Route: 064
     Dates: start: 20111226, end: 20120927

REACTIONS (2)
  - Pulmonary artery stenosis congenital [Unknown]
  - Agitation neonatal [Recovered/Resolved]
